FAERS Safety Report 13423378 (Version 1)
Quarter: 2017Q2

REPORT INFORMATION
  Report Type: Spontaneous
  Country: FR (occurrence: FR)
  Receive Date: 20170410
  Receipt Date: 20170410
  Transmission Date: 20170830
  Serious: Yes (Hospitalization)
  Sender: FDA-Public Use
  Company Number: FR-PFIZER INC-2017145547

PATIENT
  Age: 64 Year
  Sex: Male

DRUGS (5)
  1. DOCETAXEL. [Suspect]
     Active Substance: DOCETAXEL
     Dosage: CYCLE 2
     Dates: start: 20150529
  2. DOCETAXEL. [Suspect]
     Active Substance: DOCETAXEL
     Dosage: CYCLE 5
     Dates: start: 20150731
  3. DOCETAXEL. [Suspect]
     Active Substance: DOCETAXEL
     Indication: LUNG ADENOCARCINOMA STAGE IV
     Dosage: 75 MG/M2, CYCLIC 1
     Route: 042
     Dates: start: 20150504
  4. DOCETAXEL. [Suspect]
     Active Substance: DOCETAXEL
     Dosage: CYCLE 4
     Dates: start: 20150710
  5. DOCETAXEL. [Suspect]
     Active Substance: DOCETAXEL
     Dosage: CYCLE 3
     Dates: start: 20150619

REACTIONS (2)
  - Enterovesical fistula [Unknown]
  - Colitis [Unknown]

NARRATIVE: CASE EVENT DATE: 20150801
